FAERS Safety Report 19789864 (Version 1)
Quarter: 2021Q3

REPORT INFORMATION
  Report Type: Report from Study
  Country: PA (occurrence: PA)
  Receive Date: 20210904
  Receipt Date: 20210904
  Transmission Date: 20211014
  Serious: Yes (Other)
  Sender: FDA-Public Use
  Company Number: NVSC2020PA016220

PATIENT
  Age: 43 Year
  Sex: Female
  Weight: 58.96 kg

DRUGS (2)
  1. GILENYA [Suspect]
     Active Substance: FINGOLIMOD HYDROCHLORIDE
     Indication: MULTIPLE SCLEROSIS
     Dosage: 0.5 MG, QD
     Route: 048
     Dates: start: 20191128
  2. ACETAMINOPHEN. [Concomitant]
     Active Substance: ACETAMINOPHEN
     Indication: HEADACHE
     Dosage: 500 MG
     Route: 048

REACTIONS (14)
  - Poor quality sleep [Unknown]
  - Vision blurred [Unknown]
  - Hypoaesthesia [Recovered/Resolved with Sequelae]
  - Dizziness [Unknown]
  - Disturbance in attention [Unknown]
  - Tongue movement disturbance [Recovered/Resolved with Sequelae]
  - Muscular weakness [Unknown]
  - Dysphonia [Recovered/Resolved with Sequelae]
  - Product dose omission issue [Unknown]
  - Headache [Not Recovered/Not Resolved]
  - Dizziness [Recovered/Resolved with Sequelae]
  - Muscle spasms [Recovered/Resolved with Sequelae]
  - Multiple sclerosis relapse [Unknown]
  - Stress [Unknown]

NARRATIVE: CASE EVENT DATE: 20200118
